FAERS Safety Report 23891555 (Version 1)
Quarter: 2024Q2

REPORT INFORMATION
  Report Type: Report from Study
  Country: CA (occurrence: CA)
  Receive Date: 20240524
  Receipt Date: 20240524
  Transmission Date: 20240716
  Serious: Yes (Hospitalization, Other)
  Sender: FDA-Public Use
  Company Number: CA-ABBVIE-5766939

PATIENT
  Age: 53 Year
  Sex: Male

DRUGS (3)
  1. HUMIRA [Suspect]
     Active Substance: ADALIMUMAB
     Indication: Rheumatoid arthritis
     Route: 058
     Dates: start: 20201020
  2. CANAGLIFLOZIN [Concomitant]
     Active Substance: CANAGLIFLOZIN
     Indication: Product used for unknown indication
  3. BISOPROLOL [Concomitant]
     Active Substance: BISOPROLOL\BISOPROLOL FUMARATE
     Indication: Product used for unknown indication

REACTIONS (11)
  - Limb injury [Unknown]
  - Erythema [Unknown]
  - Limb operation [Unknown]
  - Osteoarthritis [Unknown]
  - Swelling [Unknown]
  - Pain in extremity [Unknown]
  - Iatrogenic injury [Unknown]
  - Onychomadesis [Unknown]
  - Pain [Unknown]
  - Hypoaesthesia [Unknown]
  - Soft tissue foreign body [Unknown]

NARRATIVE: CASE EVENT DATE: 20240501
